FAERS Safety Report 7080512-5 (Version None)
Quarter: 2010Q4

REPORT INFORMATION
  Report Type: 
  Country: None (occurrence: None)
  Receive Date: 20101103
  Receipt Date: 20101020
  Transmission Date: 20110411
  Serious: Yes (Other)
  Sender: FDA-Public Use
  Company Number: US-AMGEN-USASP2010000703

PATIENT

DRUGS (10)
  1. NPLATE [Suspect]
     Indication: IDIOPATHIC THROMBOCYTOPENIC PURPURA
     Dosage: 2 A?G/KG, QWK
     Dates: start: 20100922, end: 20101013
  2. NPLATE [Suspect]
     Dosage: UNK
     Dates: start: 20100929, end: 20100929
  3. NPLATE [Suspect]
     Dosage: UNK
     Dates: start: 20101006, end: 20101006
  4. NPLATE [Suspect]
     Dosage: UNK
     Dates: start: 20101013, end: 20101013
  5. PREDNISONE [Concomitant]
     Dosage: UNK, QD
     Dates: start: 20100929
  6. PREDNISONE [Concomitant]
     Dosage: UNK
     Dates: start: 20101006
  7. PREDNISONE [Concomitant]
     Dosage: UNK, QOD
  8. CYCLOSPORINE [Concomitant]
     Dosage: UNK UNK, BID
     Dates: start: 20100929, end: 20100929
  9. CYCLOSPORINE [Concomitant]
     Dosage: UNK UNK, BID
     Dates: start: 20101006, end: 20101006
  10. CYCLOSPORINE [Concomitant]
     Dosage: UNK UNK, QD
     Dates: start: 20101020, end: 20101020

REACTIONS (1)
  - PLATELET COUNT INCREASED [None]
